FAERS Safety Report 15754429 (Version 2)
Quarter: 2019Q1

REPORT INFORMATION
  Report Type: Report from Study
  Country: US (occurrence: US)
  Receive Date: 20181224
  Receipt Date: 20190131
  Transmission Date: 20190417
  Serious: Yes (Hospitalization)
  Sender: FDA-Public Use
  Company Number: US-AMGEN-USASL2018157237

PATIENT
  Age: 85 Year
  Sex: Female

DRUGS (3)
  1. REPATHA [Suspect]
     Active Substance: EVOLOCUMAB
     Indication: HYPERCHOLESTEROLAEMIA
  2. REPATHA [Suspect]
     Active Substance: EVOLOCUMAB
     Indication: BLOOD CHOLESTEROL ABNORMAL
     Dosage: 420 MG, QMO
     Route: 065
  3. REPATHA [Suspect]
     Active Substance: EVOLOCUMAB
     Indication: BLOOD CHOLESTEROL INCREASED
     Dosage: 420 MG (/3.5ML), Q2WK
     Route: 065
     Dates: start: 201802, end: 20181028

REACTIONS (21)
  - Hypersensitivity [Unknown]
  - Arthralgia [Unknown]
  - Nausea [Unknown]
  - Pain [Unknown]
  - Insomnia [Unknown]
  - Hypophagia [Unknown]
  - Herpes zoster [Recovered/Resolved]
  - Headache [Unknown]
  - Back pain [Unknown]
  - Vision blurred [Unknown]
  - Asthenia [Unknown]
  - Throat clearing [Unknown]
  - Off label use [Unknown]
  - Gait inability [Unknown]
  - Throat irritation [Unknown]
  - Myalgia [Unknown]
  - Blood cholesterol abnormal [Unknown]
  - Rhinorrhoea [Unknown]
  - Injection site pain [Unknown]
  - Injection site erythema [Recovered/Resolved]
  - Joint swelling [Recovering/Resolving]

NARRATIVE: CASE EVENT DATE: 201804
